FAERS Safety Report 9103279 (Version 2)
Quarter: 2013Q1

REPORT INFORMATION
  Report Type: Spontaneous
  Country: US (occurrence: US)
  Receive Date: 20130219
  Receipt Date: 20130319
  Transmission Date: 20140127
  Serious: Yes (Hospitalization)
  Sender: FDA-Public Use
  Company Number: US-BRISTOL-MYERS SQUIBB COMPANY-17374919

PATIENT
  Age: 72 Year
  Sex: Male

DRUGS (3)
  1. ORENCIA FOR INJ [Suspect]
     Indication: RHEUMATOID ARTHRITIS
     Route: 042
     Dates: start: 20130131
  2. LEFLUNOMIDE [Concomitant]
  3. PREDNISONE [Concomitant]

REACTIONS (1)
  - Asthenia [Unknown]
